FAERS Safety Report 5350748-X (Version None)
Quarter: 2007Q2

REPORT INFORMATION
  Report Type: 
  Country: None (occurrence: None)
  Receive Date: 20070606
  Receipt Date: 20070606
  Transmission Date: 20071010
  Serious: No
  Sender: FDA-Public Use
  Company Number: None

PATIENT
  Age: 46 Year
  Sex: Female
  Weight: 113.3993 kg

DRUGS (1)
  1. PROPOFOL [Suspect]
     Indication: SEDATIVE THERAPY
     Dosage: 250 MGS-APPROX- IV
     Route: 042
     Dates: start: 20070522, end: 20070522

REACTIONS (2)
  - PARANASAL SINUS HYPERSECRETION [None]
  - PYREXIA [None]
